FAERS Safety Report 5748209-9 (Version None)
Quarter: 2008Q2

REPORT INFORMATION
  Report Type: 
  Country: None (occurrence: None)
  Receive Date: 20080523
  Receipt Date: 20080514
  Transmission Date: 20081010
  Serious: Yes (Life-Threatening, Hospitalization)
  Sender: FDA-Public Use
  Company Number: DE-PFIZER INC-2008041876

PATIENT
  Sex: Female

DRUGS (4)
  1. SU-011,248 [Suspect]
     Indication: OVARIAN CANCER
     Route: 048
  2. METOCLOPRAMIDE [Concomitant]
     Route: 048
  3. METAMIZOLE [Concomitant]
     Route: 048
  4. BUTYLSCOPOLAMIN [Concomitant]
     Route: 042
     Dates: start: 20080508, end: 20080513

REACTIONS (1)
  - TUMOUR LYSIS SYNDROME [None]
